FAERS Safety Report 9257319 (Version 1)
Quarter: 2013Q1

REPORT INFORMATION
  Report Type: Spontaneous
  Country: US (occurrence: None)
  Receive Date: 20121212
  Receipt Date: 20121212
  Transmission Date: 20140127
  Serious: No
  Sender: FDA-Public Use
  Company Number: 1210USA002906

PATIENT
  Age: 58 Year
  Sex: Male

DRUGS (7)
  1. VICTRELIS [Suspect]
     Indication: HEPATITIS C
     Dates: start: 201202
  2. REBETOL [Suspect]
     Indication: HEPATITIS C
  3. BENAZEPRIL HYDROCHLORIDE (BENAZEPRIL HYDROCHOLORIDE) TABLET, 10 MG [Concomitant]
  4. VITAMIN D (VITAMIN D) CAPSULE [Concomitant]
  5. CELEXA [Suspect]
  6. ATIVAN(LORAZEPAM) TABLET, 0.5 MG [Concomitant]
  7. PRILOSEC [Suspect]

REACTIONS (6)
  - Oropharyngeal pain [None]
  - Dyspnoea [None]
  - Anxiety [None]
  - Insomnia [None]
  - Anaemia [None]
  - Inappropriate schedule of drug administration [None]
